FAERS Safety Report 8277291-2 (Version None)
Quarter: 2012Q2

REPORT INFORMATION
  Report Type: 
  Country: None (occurrence: None)
  Receive Date: 20120412
  Receipt Date: 20120405
  Transmission Date: 20120825
  Serious: Yes (Hospitalization)
  Sender: FDA-Public Use
  Company Number: US-GLAXOSMITHKLINE-A0973114A

PATIENT
  Age: 47 Year
  Sex: Male
  Weight: 104.3 kg

DRUGS (2)
  1. REVATIO [Concomitant]
  2. FLOLAN [Suspect]
     Indication: COR PULMONALE CHRONIC
     Dosage: 7NGKM PER DAY
     Route: 042
     Dates: start: 20120216

REACTIONS (5)
  - PAIN IN EXTREMITY [None]
  - CONDITION AGGRAVATED [None]
  - HEADACHE [None]
  - DIARRHOEA [None]
  - ADVERSE DRUG REACTION [None]
